FAERS Safety Report 13747622 (Version 6)
Quarter: 2018Q1

REPORT INFORMATION
  Report Type: Report from Study
  Country: GB (occurrence: GB)
  Receive Date: 20170712
  Receipt Date: 20180118
  Transmission Date: 20180508
  Serious: Yes (Hospitalization, Other)
  Sender: FDA-Public Use
  Company Number: GB-ARIAD PHARMACEUTICALS, INC-2017GB008257

PATIENT
  Age: 73 Year
  Sex: Male

DRUGS (19)
  1. BRIGATINIB [Suspect]
     Active Substance: BRIGATINIB
     Indication: LUNG ADENOCARCINOMA STAGE IV
     Dosage: 90 MG, QD
     Route: 048
     Dates: start: 20160907, end: 20161004
  2. DEXAMETHASONE. [Concomitant]
     Active Substance: DEXAMETHASONE
     Indication: PERFORMANCE STATUS DECREASED
  3. DEXAMETHASONE. [Concomitant]
     Active Substance: DEXAMETHASONE
     Indication: LETHARGY
  4. BRIGATINIB [Suspect]
     Active Substance: BRIGATINIB
     Dosage: 90 MG, QD
     Route: 048
     Dates: start: 20161123, end: 20170218
  5. ASPIRIN. [Concomitant]
     Active Substance: ASPIRIN
     Indication: HYPERTENSION
     Dosage: UNK
     Route: 048
     Dates: start: 2016
  6. CYCLIZINE [Concomitant]
     Active Substance: CYCLIZINE
     Indication: NAUSEA
     Dosage: UNK
     Route: 048
     Dates: start: 20170123
  7. BRIGATINIB [Suspect]
     Active Substance: BRIGATINIB
     Dosage: 90 MG, QD
     Route: 048
     Dates: start: 20161012, end: 20161031
  8. RANITIDINE. [Concomitant]
     Active Substance: RANITIDINE
     Indication: PROPHYLAXIS
     Dosage: UNK
     Route: 048
     Dates: start: 2016
  9. CYCLIZINE [Concomitant]
     Active Substance: CYCLIZINE
     Indication: VOMITING
  10. THEALOZ [Concomitant]
     Indication: DRY EYE
     Dosage: UNK
     Route: 047
     Dates: start: 20170321
  11. BRIGATINIB [Suspect]
     Active Substance: BRIGATINIB
     Dosage: 90 MG, QD
     Route: 048
     Dates: start: 20170222, end: 20170507
  12. LORAZEPAM. [Concomitant]
     Active Substance: LORAZEPAM
     Indication: NAUSEA
     Dosage: UNK
     Route: 060
     Dates: start: 20170124
  13. CARBOMER [Concomitant]
     Active Substance: CARBOMER
     Indication: DRY EYE
     Dosage: UNK
     Route: 047
     Dates: start: 20170321
  14. SIMVASTATIN. [Concomitant]
     Active Substance: SIMVASTATIN
     Indication: BLOOD CHOLESTEROL INCREASED
     Dosage: UNK
     Route: 048
     Dates: start: 2010
  15. BRIGATINIB [Suspect]
     Active Substance: BRIGATINIB
     Dosage: 90 MG, QD
     Route: 048
     Dates: start: 20161115, end: 20161116
  16. DEXAMETHASONE. [Concomitant]
     Active Substance: DEXAMETHASONE
     Indication: GAIT DISTURBANCE
     Dosage: UNK
     Route: 048
     Dates: start: 20161004
  17. DEXAMETHASONE. [Concomitant]
     Active Substance: DEXAMETHASONE
     Indication: FATIGUE
  18. ZOPICLONE [Concomitant]
     Active Substance: ZOPICLONE
     Indication: INSOMNIA
     Dosage: UNK
     Route: 048
     Dates: start: 20161011
  19. LORAZEPAM. [Concomitant]
     Active Substance: LORAZEPAM
     Indication: VOMITING

REACTIONS (1)
  - Confusional state [Recovered/Resolved]

NARRATIVE: CASE EVENT DATE: 20170508
